FAERS Safety Report 6354535-5 (Version None)
Quarter: 2009Q3

REPORT INFORMATION
  Report Type: 
  Country: None (occurrence: None)
  Receive Date: 20090909
  Receipt Date: 20090831
  Transmission Date: 20100115
  Serious: Yes (Hospitalization)
  Sender: FDA-Public Use
  Company Number: 2009008161

PATIENT
  Age: 56 Year
  Sex: Male

DRUGS (2)
  1. ACTIQ [Suspect]
     Indication: PAIN
     Dosage: (200 MCG), BU
     Route: 002
     Dates: start: 20080108, end: 20090204
  2. DURAGESIC MATRIX (PARACETAMOL, ORPHENADRINE CITRATE) (POULTICE OR PATC [Suspect]
     Indication: PAIN
     Dosage: (50 MCG), TOPICAL
     Route: 061
     Dates: start: 20080108, end: 20090204

REACTIONS (2)
  - ACUTE RESPIRATORY FAILURE [None]
  - DEPRESSED LEVEL OF CONSCIOUSNESS [None]
